FAERS Safety Report 6103790-5 (Version None)
Quarter: 2009Q1

REPORT INFORMATION
  Report Type: 
  Country: None (occurrence: None)
  Receive Date: 20090305
  Receipt Date: 20090304
  Transmission Date: 20090719
  Serious: Yes (Death)
  Sender: FDA-Public Use
  Company Number: US-JNJFOC-20090103183

PATIENT
  Age: 42 Year
  Sex: Male

DRUGS (3)
  1. LEVAQUIN [Suspect]
     Indication: INFECTION
     Route: 048
  2. ASPIRIN [Concomitant]
     Indication: PYREXIA
     Route: 048
  3. PHENARGAN [Concomitant]
     Route: 048

REACTIONS (3)
  - ASTHENIA [None]
  - MYOCARDIAL INFARCTION [None]
  - NAUSEA [None]
